FAERS Safety Report 8491981-8 (Version None)
Quarter: 2012Q3

REPORT INFORMATION
  Report Type: 
  Country: None (occurrence: None)
  Receive Date: 20120706
  Receipt Date: 20120626
  Transmission Date: 20120928
  Serious: Yes (Hospitalization)
  Sender: FDA-Public Use
  Company Number: PHFR2012GB003741

PATIENT
  Sex: Female
  Weight: 64 kg

DRUGS (1)
  1. ACZ885 [Suspect]
     Indication: CRYOPYRIN ASSOCIATED PERIODIC SYNDROME
     Dosage: 150 MG, UNK
     Route: 058
     Dates: start: 20120215

REACTIONS (1)
  - LOWER RESPIRATORY TRACT INFECTION [None]
